FAERS Safety Report 14030915 (Version 3)
Quarter: 2017Q4

REPORT INFORMATION
  Report Type: Spontaneous
  Country: PT (occurrence: PT)
  Receive Date: 20171002
  Receipt Date: 20171023
  Transmission Date: 20180321
  Serious: Yes (Other)
  Sender: FDA-Public Use
  Company Number: PT-ROCHE-1998827

PATIENT
  Sex: Female

DRUGS (8)
  1. DIAZEPAM. [Concomitant]
     Active Substance: DIAZEPAM
     Dosage: HALF A TABLET AT LUNCH AND 1 TABLET AT NIGHT
     Route: 065
  2. SIMVASTATIN. [Concomitant]
     Active Substance: SIMVASTATIN
     Dosage: ONCE A DAY AT NIGHT
     Route: 065
  3. LAMOTRIGINE. [Concomitant]
     Active Substance: LAMOTRIGINE
     Dosage: 1 AT LUNCH AND 1 AT DINNER
     Route: 065
  4. KOMPENSAN [Concomitant]
     Dosage: ON THE END OF THE MEALS
     Route: 065
  5. SERTRALINE [Concomitant]
     Active Substance: SERTRALINE HYDROCHLORIDE
     Route: 065
  6. RIVOTRIL [Suspect]
     Active Substance: CLONAZEPAM
     Indication: PANIC ATTACK
     Dosage: HALF A TABLET OF RIVOTRIL AT NIGHT
     Route: 048
     Dates: start: 20170920, end: 20170923
  7. DOMPERIDONE [Concomitant]
     Active Substance: DOMPERIDONE
     Dosage: BEFORE THE MEALS
     Route: 065
  8. OMEPRAZOLE. [Concomitant]
     Active Substance: OMEPRAZOLE
     Dosage: TABLET FASTING AND 1 TABLET WHEN GOING TO SLEEP
     Route: 065

REACTIONS (18)
  - Headache [Recovered/Resolved]
  - Oesophagitis [Recovered/Resolved]
  - Off label use [Unknown]
  - Swelling [Recovered/Resolved]
  - Oral mucosal blistering [Recovered/Resolved]
  - Stomatitis [Recovered/Resolved]
  - Malaise [Recovered/Resolved]
  - Asthenia [Recovered/Resolved]
  - Dizziness [Recovered/Resolved]
  - Hypoaesthesia oral [Recovered/Resolved]
  - Vomiting [Recovered/Resolved]
  - Intentional product use issue [Unknown]
  - Gastritis [Recovered/Resolved]
  - Toothache [Recovered/Resolved]
  - Gingival pain [Recovered/Resolved]
  - Paraesthesia oral [Recovered/Resolved]
  - Fatigue [Recovered/Resolved]
  - Heart rate increased [Recovered/Resolved]

NARRATIVE: CASE EVENT DATE: 20170920
